FAERS Safety Report 21527787 (Version 2)
Quarter: 2022Q4

REPORT INFORMATION
  Report Type: Spontaneous
  Country: US (occurrence: US)
  Receive Date: 20221031
  Receipt Date: 20221031
  Transmission Date: 20230112
  Serious: No
  Sender: FDA-Public Use
  Company Number: US-RECKITT BENCKISER HEALTHCARE INT LIMITED-RB-084392-2022

PATIENT
  Age: 64 Year
  Sex: Female

DRUGS (5)
  1. MUCINEX [Suspect]
     Active Substance: GUAIFENESIN
     Indication: COVID-19
     Dosage: 2 DOSAGE FORM, BID
     Route: 048
     Dates: start: 20220206
  2. MUCINEX [Suspect]
     Active Substance: GUAIFENESIN
     Indication: Cough
  3. MUCINEX [Suspect]
     Active Substance: GUAIFENESIN
     Indication: Wheezing
  4. ACETAMINOPHEN [Concomitant]
     Active Substance: ACETAMINOPHEN
     Indication: Blood pressure abnormal
     Dosage: UNK
     Route: 065
  5. ASPIRIN [Concomitant]
     Active Substance: ASPIRIN
     Indication: Blood pressure abnormal
     Dosage: UNK
     Route: 065

REACTIONS (2)
  - Drug effective for unapproved indication [Unknown]
  - Product use in unapproved indication [Unknown]

NARRATIVE: CASE EVENT DATE: 20220206
